FAERS Safety Report 17054043 (Version 1)
Quarter: 2019Q4

REPORT INFORMATION
  Report Type: Spontaneous
  Country: BR (occurrence: BR)
  Receive Date: 20191120
  Receipt Date: 20191120
  Transmission Date: 20200122
  Serious: Yes (Other)
  Sender: FDA-Public Use
  Company Number: BR-PFIZER INC-2019496903

PATIENT
  Sex: Female
  Weight: 63 kg

DRUGS (1)
  1. ATLANSIL [Suspect]
     Active Substance: AMIODARONE
     Indication: CARDIAC DISORDER
     Dosage: 1 DF, 1X/DAY (1 DF, QD)
     Route: 048

REACTIONS (1)
  - Drug dependence [Unknown]
